FAERS Safety Report 6763475-9 (Version None)
Quarter: 2010Q2

REPORT INFORMATION
  Report Type: 
  Country: None (occurrence: None)
  Receive Date: 20100608
  Receipt Date: 20100531
  Transmission Date: 20101027
  Serious: Yes (Hospitalization, Disabling)
  Sender: FDA-Public Use
  Company Number: 2009EU002966

PATIENT
  Age: 36 Year
  Sex: Male
  Weight: 72 kg

DRUGS (8)
  1. PROGRAF [Suspect]
     Indication: RENAL TRANSPLANT
     Dosage: 2.5 MG, BID, ORAL
     Route: 048
     Dates: start: 20070601
  2. MYFORTIC [Suspect]
     Indication: RENAL TRANSPLANT
     Dosage: 360 MG, QID, ORAL
     Route: 048
     Dates: start: 20070601
  3. AMLODIPINE [Concomitant]
  4. FOSAMAX [Concomitant]
  5. MOXONIDINE (MOXONIDINE) TABLET [Concomitant]
  6. METOHEXAL (METOPROLOL TARTRATE) [Concomitant]
  7. VITAMIN D [Concomitant]
  8. PANTOPRAZOLE SODIUM [Concomitant]

REACTIONS (7)
  - AORTIC STENOSIS [None]
  - CULTURE STOOL POSITIVE [None]
  - DIARRHOEA HAEMORRHAGIC [None]
  - FEMORAL ARTERIAL STENOSIS [None]
  - GASTROENTERITIS CRYPTOSPORIDIAL [None]
  - INTERMITTENT CLAUDICATION [None]
  - PERIPHERAL ARTERIAL OCCLUSIVE DISEASE [None]
